FAERS Safety Report 12090238 (Version 2)
Quarter: 2018Q2

REPORT INFORMATION
  Report Type: Spontaneous
  Country: US (occurrence: US)
  Receive Date: 20160218
  Receipt Date: 20180418
  Transmission Date: 20180711
  Serious: Yes (Other)
  Sender: FDA-Public Use
  Company Number: US-009507513-0903USA02599

PATIENT
  Age: 69 Year
  Sex: Female

DRUGS (4)
  1. FOSAMAX [Suspect]
     Active Substance: ALENDRONATE SODIUM
     Dosage: 70 MG, ONE TIME A WEEK
     Route: 048
     Dates: start: 2015, end: 201509
  2. FOSAMAX [Suspect]
     Active Substance: ALENDRONATE SODIUM
     Indication: OSTEOPOROSIS
     Dosage: 70 MG, ONCE PER WEEK
     Route: 048
     Dates: start: 2002, end: 2011
  3. LIPITOR [Suspect]
     Active Substance: ATORVASTATIN CALCIUM
  4. METOPROLOL. [Concomitant]
     Active Substance: METOPROLOL

REACTIONS (8)
  - Gastric disorder [Recovered/Resolved]
  - Jaw disorder [Not Recovered/Not Resolved]
  - Temporomandibular joint syndrome [Not Recovered/Not Resolved]
  - Flatulence [Recovered/Resolved]
  - Tooth disorder [Not Recovered/Not Resolved]
  - Abdominal discomfort [Recovered/Resolved]
  - Dyspepsia [Recovered/Resolved]
  - Conjunctival degeneration [Not Recovered/Not Resolved]

NARRATIVE: CASE EVENT DATE: 200903
